FAERS Safety Report 23819225 (Version 3)
Quarter: 2024Q2

REPORT INFORMATION
  Report Type: Spontaneous
  Country: GB (occurrence: None)
  Receive Date: 20240506
  Receipt Date: 20240513
  Transmission Date: 20240716
  Serious: Yes (Other)
  Sender: FDA-Public Use
  Company Number: 2024A105290

PATIENT
  Sex: Female

DRUGS (1)
  1. OSIMERTINIB [Suspect]
     Active Substance: OSIMERTINIB
     Route: 048
     Dates: start: 20210409, end: 202206

REACTIONS (8)
  - Pulmonary embolism [Unknown]
  - Malignant neoplasm oligoprogression [Unknown]
  - Malignant neoplasm progression [Unknown]
  - Cardiac failure [Unknown]
  - Dilated cardiomyopathy [Unknown]
  - Pneumonitis [Unknown]
  - COVID-19 [Unknown]
  - Dyspnoea [Unknown]

NARRATIVE: CASE EVENT DATE: 20220501
